FAERS Safety Report 5310142-4 (Version None)
Quarter: 2007Q2

REPORT INFORMATION
  Report Type: 
  Country: None (occurrence: None)
  Receive Date: 20070427
  Receipt Date: 20070418
  Transmission Date: 20071010
  Serious: Yes (Hospitalization)
  Sender: FDA-Public Use
  Company Number: TW-ROCHE-492900

PATIENT

DRUGS (4)
  1. PEGASYS [Suspect]
     Indication: HEPATITIS C
     Dosage: STOP DATE REPORTED AS 2007.
     Route: 065
  2. PEGASYS [Suspect]
     Route: 065
  3. ROBATROL [Suspect]
     Indication: HEPATITIS C
     Route: 048
  4. ROBATROL [Suspect]
     Dosage: STOP DATE REPORTED AS 2007.
     Route: 048

REACTIONS (1)
  - HAEMOLYTIC ANAEMIA [None]
